FAERS Safety Report 5631467-9 (Version None)
Quarter: 2008Q1

REPORT INFORMATION
  Report Type: 
  Country: None (occurrence: None)
  Receive Date: 20080215
  Receipt Date: 20080204
  Transmission Date: 20080703
  Serious: Yes (Other)
  Sender: FDA-Public Use
  Company Number: GP-08-02-0001

PATIENT
  Sex: Female

DRUGS (5)
  1. FLUCONAZOLE [Suspect]
     Indication: VULVOVAGINAL MYCOTIC INFECTION
     Dosage: 150 MG, QD, PO
     Route: 048
     Dates: start: 20070128
  2. FLUCONAZOLE [Suspect]
     Indication: VULVOVAGINAL MYCOTIC INFECTION
     Dosage: 150 MG, QD, PO
     Route: 048
     Dates: start: 20070131
  3. FLUCONAZOLE [Suspect]
     Indication: VULVOVAGINAL MYCOTIC INFECTION
     Dosage: 150 MG, QD, PO
     Route: 048
     Dates: start: 20080201
  4. TOPROL-XL [Concomitant]
  5. MAXZIDE (HYDROCHLOROTHIAZIDE; TRIAMPTERENE) [Concomitant]

REACTIONS (6)
  - ASTHENIA [None]
  - BLOOD PRESSURE INCREASED [None]
  - COLD SWEAT [None]
  - FEELING JITTERY [None]
  - HEART RATE INCREASED [None]
  - NAUSEA [None]
